FAERS Safety Report 12646942 (Version 1)
Quarter: 2016Q3

REPORT INFORMATION
  Report Type: Spontaneous
  Country: DE (occurrence: DE)
  Receive Date: 20160812
  Receipt Date: 20160812
  Transmission Date: 20161109
  Serious: Yes (Other)
  Sender: FDA-Public Use
  Company Number: DE-009507513-1608DEU004217

PATIENT
  Age: 26 Year
  Sex: Female

DRUGS (1)
  1. NUVARING [Suspect]
     Active Substance: ETHINYL ESTRADIOL\ETONOGESTREL
     Indication: CHEMICAL CONTRACEPTION
     Dosage: ENG 120 MICROGRAM/EE 15 MICROGRAM PER 24H
     Route: 067
     Dates: end: 201601

REACTIONS (2)
  - Unintended pregnancy [Not Recovered/Not Resolved]
  - Pregnancy on contraceptive [Not Recovered/Not Resolved]

NARRATIVE: CASE EVENT DATE: 20160113
